FAERS Safety Report 9325392 (Version 2)
Quarter: 2013Q2

REPORT INFORMATION
  Report Type: Spontaneous
  Country: CH (occurrence: CH)
  Receive Date: 20130604
  Receipt Date: 20130625
  Transmission Date: 20140414
  Serious: Yes (Other)
  Sender: FDA-Public Use
  Company Number: CH-ROCHE-1231717

PATIENT
  Age: 50 Year
  Sex: Female
  Weight: 56 kg

DRUGS (1)
  1. MABTHERA [Suspect]
     Indication: SJOGREN^S SYNDROME
     Route: 042
     Dates: start: 20130521

REACTIONS (3)
  - Cytokine release syndrome [Unknown]
  - Pyrexia [Recovered/Resolved]
  - Angioedema [Recovered/Resolved]
